FAERS Safety Report 21011740 (Version 1)
Quarter: 2022Q2

REPORT INFORMATION
  Report Type: Spontaneous
  Country: CN (occurrence: CN)
  Receive Date: 20220627
  Receipt Date: 20220627
  Transmission Date: 20220721
  Serious: Yes (Other)
  Sender: FDA-Public Use
  Company Number: CN-PFIZER INC-PV202200009736

PATIENT
  Age: 72 Year
  Sex: Male

DRUGS (1)
  1. ESTRAMUSTINE [Suspect]
     Active Substance: ESTRAMUSTINE
     Indication: Prostate cancer
     Dosage: 0.28 G, 2X/DAY
     Route: 048
     Dates: start: 20220516, end: 20220617

REACTIONS (2)
  - Pseudogynaecomastia [Recovering/Resolving]
  - Breast pain [Recovering/Resolving]

NARRATIVE: CASE EVENT DATE: 20220520
